FAERS Safety Report 8274497-3 (Version None)
Quarter: 2012Q2

REPORT INFORMATION
  Report Type: 
  Country: None (occurrence: None)
  Receive Date: 20120411
  Receipt Date: 20120319
  Transmission Date: 20120825
  Serious: Yes (Death)
  Sender: FDA-Public Use
  Company Number: JP-ROCHE-1053462

PATIENT
  Sex: Female

DRUGS (11)
  1. ALLEGRA [Concomitant]
     Dates: start: 20091202
  2. SILECE [Concomitant]
     Dates: start: 20050101
  3. PROCATEROL HCL [Concomitant]
     Dates: start: 20110527
  4. OMALIZUMAB [Suspect]
     Indication: PRODUCT USED FOR UNKNOWN INDICATION
     Route: 058
     Dates: start: 20111115
  5. NEUROTROPIN [Concomitant]
  6. MONTELUKAST SODIUM [Concomitant]
     Dates: start: 20090724
  7. ACETAMINOPHEN [Concomitant]
  8. LYRICA [Concomitant]
     Dates: start: 20111003
  9. RISPERDAL [Concomitant]
     Dates: start: 20050101
  10. HIRNAMIN [Concomitant]
     Dates: start: 20050101
  11. PREDNISOLONE [Concomitant]

REACTIONS (2)
  - CARDIO-RESPIRATORY ARREST [None]
  - COMPLETED SUICIDE [None]
